FAERS Safety Report 9199519 (Version 2)
Quarter: 2013Q2

REPORT INFORMATION
  Report Type: Spontaneous
  Country: US (occurrence: US)
  Receive Date: 20130329
  Receipt Date: 20130424
  Transmission Date: 20140414
  Serious: No
  Sender: FDA-Public Use
  Company Number: US-009507513-1303USA013187

PATIENT
  Sex: 0

DRUGS (1)
  1. EMEND [Suspect]
     Indication: CHEMOTHERAPY
     Dosage: 150 MG, QD
     Route: 042

REACTIONS (3)
  - Dyspnoea [Recovered/Resolved]
  - Flushing [Recovered/Resolved]
  - Chest discomfort [Recovered/Resolved]
